FAERS Safety Report 5639420-6 (Version None)
Quarter: 2008Q1

REPORT INFORMATION
  Report Type: 
  Country: None (occurrence: None)
  Receive Date: 20080226
  Receipt Date: 20080219
  Transmission Date: 20080703
  Serious: Yes (Life-Threatening, Hospitalization)
  Sender: FDA-Public Use
  Company Number: FR-PFIZER INC-2008013116

PATIENT
  Age: 33 Year
  Sex: Male

DRUGS (4)
  1. HYDROXYZINE HYDROCHLORIDE [Suspect]
     Dosage: TEXT:6 GRAMS ONCE
  2. GABAPENTIN [Suspect]
     Dosage: TEXT:1 GRAM ONCE
  3. TRAMADOL HCL [Suspect]
     Dosage: TEXT:10 GRAMS ONCE
  4. CLONAZEPAM [Suspect]
     Dosage: DAILY DOSE:80MG-FREQ:ONCE

REACTIONS (2)
  - CARDIAC ARREST [None]
  - SHOCK [None]
